FAERS Safety Report 6686713-X (Version None)
Quarter: 2010Q2

REPORT INFORMATION
  Report Type: 
  Country: None (occurrence: None)
  Receive Date: 20100419
  Receipt Date: 20100413
  Transmission Date: 20101027
  Serious: Yes (Death, Hospitalization)
  Sender: FDA-Public Use
  Company Number: NL-CELGENEUS-114-50794-10020240

PATIENT
  Sex: Male
  Weight: 89 kg

DRUGS (1)
  1. VIDAZA [Suspect]
     Route: 058
     Dates: start: 20100105

REACTIONS (3)
  - PHLEBITIS [None]
  - PNEUMONIA [None]
  - SEPSIS [None]
